FAERS Safety Report 8222344-8 (Version None)
Quarter: 2012Q1

REPORT INFORMATION
  Report Type: 
  Country: None (occurrence: None)
  Receive Date: 20120320
  Receipt Date: 20120310
  Transmission Date: 20120608
  Serious: Yes (Hospitalization, Other)
  Sender: FDA-Public Use
  Company Number: US-BRISTOL-MYERS SQUIBB COMPANY-15974157

PATIENT
  Age: 65 Year
  Sex: Female

DRUGS (4)
  1. COUMADIN [Suspect]
     Dosage: 5MG,6MG,7.5MG,10MG,DOSE CHANGES DAILY,FOR ABOUT 3 YEARS
  2. LEVOXYL [Concomitant]
  3. NORVASC [Concomitant]
  4. XANAX [Concomitant]

REACTIONS (3)
  - INTERNATIONAL NORMALISED RATIO DECREASED [None]
  - DRUG INEFFECTIVE [None]
  - DEEP VEIN THROMBOSIS [None]
